FAERS Safety Report 25755918 (Version 1)
Quarter: 2025Q3

REPORT INFORMATION
  Report Type: Report from Study
  Country: CA (occurrence: CA)
  Receive Date: 20250903
  Receipt Date: 20250903
  Transmission Date: 20251020
  Serious: Yes (Other)
  Sender: ABBVIE
  Company Number: CA-ABBVIE-6336854

PATIENT
  Sex: Female

DRUGS (1)
  1. HUMIRA [Suspect]
     Active Substance: ADALIMUMAB
     Indication: Crohn^s disease
     Route: 058

REACTIONS (11)
  - Small intestinal obstruction [Unknown]
  - Gastrointestinal wall thickening [Unknown]
  - Crohn^s disease [Unknown]
  - Bezoar [Unknown]
  - Increased appetite [Unknown]
  - Abdominal distension [Not Recovered/Not Resolved]
  - Mucous stools [Unknown]
  - Diverticulum [Unknown]
  - Abdominal lymphadenopathy [Unknown]
  - Neoplasm malignant [Unknown]
  - Gastrointestinal disorder [Unknown]
